FAERS Safety Report 7304928-4 (Version None)
Quarter: 2011Q1

REPORT INFORMATION
  Report Type: 
  Country: None (occurrence: None)
  Receive Date: 20110222
  Receipt Date: 20110210
  Transmission Date: 20110831
  Serious: Yes (Death, Disabling, Other)
  Sender: FDA-Public Use
  Company Number: FR-SANOFI-AVENTIS-2010SA072016

PATIENT
  Age: 77 Year
  Sex: Male

DRUGS (1)
  1. LOVENOX [Suspect]
     Indication: PROPHYLAXIS
     Route: 058
     Dates: start: 20070101

REACTIONS (6)
  - VISUAL ACUITY REDUCED [None]
  - RASH [None]
  - SKIN EXFOLIATION [None]
  - PRURITUS [None]
  - APHAGIA [None]
  - TOXIC EPIDERMAL NECROLYSIS [None]
